FAERS Safety Report 17956236 (Version 2)
Quarter: 2020Q4

REPORT INFORMATION
  Report Type: Spontaneous
  Country: FR (occurrence: FR)
  Receive Date: 20200629
  Receipt Date: 20201207
  Transmission Date: 20210113
  Serious: Yes (Hospitalization)
  Sender: FDA-Public Use
  Company Number: FR-ACCORD-187119

PATIENT
  Age: 69 Year
  Sex: Female
  Weight: 64.5 kg

DRUGS (20)
  1. ROVAMYCIN [Suspect]
     Active Substance: SPIRAMYCIN
     Indication: LUNG DISORDER
     Route: 042
     Dates: start: 20200405, end: 20200406
  2. ADVAGRAF [Concomitant]
     Active Substance: TACROLIMUS
     Dosage: STRENGTH: 1 MG
  3. LANTUS [Concomitant]
     Active Substance: INSULIN GLARGINE
  4. COLECALCIFEROL [Suspect]
     Active Substance: CHOLECALCIFEROL
     Indication: VITAMIN SUPPLEMENTATION
     Route: 048
     Dates: end: 20200513
  5. PLAQUENIL [Suspect]
     Active Substance: HYDROXYCHLOROQUINE SULFATE
     Indication: CORONAVIRUS INFECTION
     Dosage: STRENGTH: 200 MG
     Route: 048
     Dates: start: 20200411, end: 20200423
  6. CEFEPIME GERDA 2 G, POUDRE POUR SOLUTION INJECTABLE (IV) ? [Suspect]
     Active Substance: CEFEPIME HYDROCHLORIDE
     Indication: LUNG DISORDER
     Dosage: STRENGTH: 1 G, POWDER FOR SOLUTION FOR INJECTION (IM / IV)
     Route: 042
     Dates: start: 20200405, end: 20200406
  7. FOLIC ACID. [Suspect]
     Active Substance: FOLIC ACID
     Indication: VITAMIN SUPPLEMENTATION
     Route: 048
     Dates: start: 20200218, end: 20200430
  8. CALCIPARINE [Suspect]
     Active Substance: HEPARIN CALCIUM
     Indication: VASCULAR DISORDER PROPHYLAXIS
     Route: 058
     Dates: start: 20200405, end: 20200406
  9. SULFAMETHOXAZOLE/TRIMETHOPRIM [Suspect]
     Active Substance: SULFAMETHOXAZOLE\TRIMETHOPRIM
     Indication: LUNG DISORDER
     Dosage: SOLUTION FOR INJECTION FOR INFUSION
     Route: 042
     Dates: start: 20200406, end: 20200407
  10. PREDNISONE. [Concomitant]
     Active Substance: PREDNISONE
  11. ARANESP [Concomitant]
     Active Substance: DARBEPOETIN ALFA
  12. LOXEN L P [Concomitant]
     Active Substance: NICARDIPINE HYDROCHLORIDE
     Dosage: STRENGTH: 50 MG
  13. ALLOPURINOL. [Suspect]
     Active Substance: ALLOPURINOL
     Indication: GOUT
     Route: 048
     Dates: end: 20200518
  14. FLECAINE [Concomitant]
     Active Substance: FLECAINIDE
     Dosage: STRENGTH: 100 MG, SCORED TABLET
  15. ATENOLOL/ATENOLOL HYDROCHLORIDE [Suspect]
     Active Substance: ATENOLOL HYDROCHLORIDE
     Indication: HYPERTENSION
     Route: 048
     Dates: end: 20200709
  16. AZITHROMYCIN ANHYDROUS. [Suspect]
     Active Substance: AZITHROMYCIN ANHYDROUS
     Indication: CORONAVIRUS INFECTION
     Route: 048
     Dates: start: 20200411, end: 20200423
  17. LANSOPRAZOLE MYLAN [Suspect]
     Active Substance: LANSOPRAZOLE
     Indication: PRODUCT USED FOR UNKNOWN INDICATION
     Dosage: STRENGTH: 15 MG
     Route: 048
     Dates: start: 20200405, end: 20200406
  18. ATORVASTATIN [Concomitant]
     Active Substance: ATORVASTATIN
  19. FUROSEMIDE. [Concomitant]
     Active Substance: FUROSEMIDE
  20. NOVORAPID [Concomitant]
     Active Substance: INSULIN ASPART

REACTIONS (3)
  - Hepatocellular injury [Not Recovered/Not Resolved]
  - Cholestasis [Recovering/Resolving]
  - Rash pustular [Recovered/Resolved]

NARRATIVE: CASE EVENT DATE: 20200502
